FAERS Safety Report 17033734 (Version 2)
Quarter: 2019Q4

REPORT INFORMATION
  Report Type: Spontaneous
  Country: BG (occurrence: BG)
  Receive Date: 20191114
  Receipt Date: 20191230
  Transmission Date: 20200122
  Serious: No
  Sender: FDA-Public Use
  Company Number: BG-TOLMAR, INC.-19BG000971

PATIENT
  Age: 67 Year
  Sex: Male

DRUGS (1)
  1. ELIGARD [Suspect]
     Active Substance: LEUPROLIDE ACETATE
     Indication: PRODUCT USED FOR UNKNOWN INDICATION
     Dosage: 45 MG, EVERY 6 MONTHS
     Route: 065

REACTIONS (3)
  - Syringe issue [None]
  - Intercepted product preparation error [None]
  - Wrong technique in product usage process [None]

NARRATIVE: CASE EVENT DATE: 20191029
